FAERS Safety Report 13620413 (Version 1)
Quarter: 2017Q2

REPORT INFORMATION
  Report Type: Spontaneous
  Country: US (occurrence: US)
  Receive Date: 20170607
  Receipt Date: 20170607
  Transmission Date: 20170830
  Serious: Yes (Death, Hospitalization)
  Sender: FDA-Public Use
  Company Number: US-B.I. PHARMACEUTICALS,INC./RIDGEFIELD-2017-BI-031835

PATIENT
  Age: 74 Year
  Sex: Female

DRUGS (3)
  1. SINEMET [Concomitant]
     Active Substance: CARBIDOPA\LEVODOPA
     Indication: PARKINSON^S DISEASE
     Route: 065
  2. MIRAPEX [Suspect]
     Active Substance: PRAMIPEXOLE DIHYDROCHLORIDE
     Indication: PARKINSON^S DISEASE
     Route: 065
  3. AZILECT [Concomitant]
     Active Substance: RASAGILINE MESYLATE
     Indication: PARKINSON^S DISEASE
     Route: 065

REACTIONS (9)
  - Death [Fatal]
  - Mobility decreased [Unknown]
  - Bile duct obstruction [Unknown]
  - Urinary tract infection [Unknown]
  - Anaemia [Unknown]
  - Hallucination [Unknown]
  - Weight decreased [Unknown]
  - Dyspnoea [Unknown]
  - Asthenia [Unknown]

NARRATIVE: CASE EVENT DATE: 20170525
